FAERS Safety Report 4653424-1 (Version None)
Quarter: 2005Q2

REPORT INFORMATION
  Report Type: 
  Country: None (occurrence: None)
  Receive Date: 20050505
  Receipt Date: 20050425
  Transmission Date: 20051028
  Serious: Yes (Other)
  Sender: FDA-Public Use
  Company Number: IE-GLAXOSMITHKLINE-B0379134A

PATIENT
  Age: 50 Year
  Sex: Female

DRUGS (1)
  1. NIQUITIN CQ 21MG [Suspect]
     Route: 062
     Dates: start: 20050327, end: 20050421

REACTIONS (11)
  - ARTHRALGIA [None]
  - BACK PAIN [None]
  - DIARRHOEA [None]
  - HEADACHE [None]
  - IRRITABILITY [None]
  - MENSTRUAL DISORDER [None]
  - MIGRAINE [None]
  - OEDEMA PERIPHERAL [None]
  - RETCHING [None]
  - URINARY INCONTINENCE [None]
  - VOMITING [None]
